FAERS Safety Report 7130261-X (Version None)
Quarter: 2010Q4

REPORT INFORMATION
  Report Type: 
  Country: None (occurrence: None)
  Receive Date: 20101201
  Receipt Date: 20101122
  Transmission Date: 20110411
  Serious: Yes (Other)
  Sender: FDA-Public Use
  Company Number: US-JNJFOC-20101108654

PATIENT
  Sex: Female
  Weight: 53.52 kg

DRUGS (5)
  1. DURAGESIC-100 [Suspect]
     Indication: PAIN
     Route: 062
  2. HYDROCHLOROTHIAZIDE [Concomitant]
     Indication: FLUID RETENTION
     Route: 048
  3. HYDROCODONE [Concomitant]
     Indication: BREAKTHROUGH PAIN
     Dosage: 7.5-325MG
     Route: 048
  4. LORAZEPAM [Concomitant]
     Indication: ANXIETY
     Route: 048
  5. DICYCLOMINE [Concomitant]
     Indication: ABDOMINAL PAIN
     Dosage: 1 OR 2 CAPSULES A DAY
     Route: 048

REACTIONS (8)
  - APPLICATION SITE PRURITUS [None]
  - DRUG DOSE OMISSION [None]
  - DRUG EFFECT DECREASED [None]
  - HYPERHIDROSIS [None]
  - MENOPAUSE [None]
  - PRODUCT ADHESION ISSUE [None]
  - TOOTH ABSCESS [None]
  - WRONG TECHNIQUE IN DRUG USAGE PROCESS [None]
